FAERS Safety Report 11283097 (Version 1)
Quarter: 2015Q3

REPORT INFORMATION
  Report Type: Spontaneous
  Country: US (occurrence: None)
  Receive Date: 20150717
  Receipt Date: 20150717
  Transmission Date: 20151125
  Serious: Yes (Disabling, Other)
  Sender: FDA-Public Use
  Company Number: None

PATIENT
  Age: 34 Year
  Sex: Female
  Weight: 79.38 kg

DRUGS (3)
  1. BENADRYL [Concomitant]
     Active Substance: DIPHENHYDRAMINE HYDROCHLORIDE
  2. INVEGA SUSTENNA [Suspect]
     Active Substance: PALIPERIDONE PALMITATE
     Indication: ILL-DEFINED DISORDER
     Dosage: 1 PER MONTH  INTO THE MUSCULE
     Route: 030
     Dates: start: 20150302, end: 20150701
  3. ZYPREXA [Concomitant]
     Active Substance: OLANZAPINE

REACTIONS (12)
  - Faecal incontinence [None]
  - Yellow skin [None]
  - Depressed level of consciousness [None]
  - Somnolence [None]
  - Dyskinesia [None]
  - Nightmare [None]
  - Memory impairment [None]
  - Dyspnoea [None]
  - Chest pain [None]
  - Amenorrhoea [None]
  - Movement disorder [None]
  - Chest discomfort [None]

NARRATIVE: CASE EVENT DATE: 20150704
